FAERS Safety Report 7418009-2 (Version None)
Quarter: 2011Q2

REPORT INFORMATION
  Report Type: 
  Country: None (occurrence: None)
  Receive Date: 20110415
  Receipt Date: 20100513
  Transmission Date: 20111010
  Serious: Yes (Hospitalization)
  Sender: FDA-Public Use
  Company Number: US-ASTRAZENECA-2008UW28149

PATIENT
  Age: 52 Year
  Sex: Female
  Weight: 92 kg

DRUGS (14)
  1. BEVACIZUMAB [Suspect]
     Indication: BREAST CANCER
     Route: 042
     Dates: start: 20080905, end: 20080101
  2. LEVOTHYROXINE [Concomitant]
     Dates: start: 20080901, end: 20081031
  3. ZESTORETIC [Suspect]
     Indication: HYPERTENSION
     Dosage: 20/12.5 MG, TWO TIMES A DAY
     Route: 048
     Dates: start: 20030101, end: 20081030
  4. KYTRIL [Concomitant]
     Dates: start: 20080905
  5. ZANTAC [Concomitant]
     Dates: start: 20080905
  6. PACLITAXEL [Suspect]
     Indication: BREAST CANCER
     Route: 042
     Dates: start: 20080905, end: 20080101
  7. BEVACIZUMAB [Suspect]
     Route: 042
     Dates: start: 20080101
  8. OXYCODONE [Concomitant]
  9. OXYCONTIN [Concomitant]
  10. DECADRON [Concomitant]
     Dates: start: 20080905
  11. BENADRYL [Concomitant]
     Dates: start: 20080905
  12. PACLITAXEL [Suspect]
     Route: 042
     Dates: start: 20080101
  13. ADVIL LIQUI-GELS [Concomitant]
     Dates: start: 20050101
  14. LISINOPRIL [Concomitant]

REACTIONS (4)
  - DEHYDRATION [None]
  - HYPOTENSION [None]
  - SINUS TACHYCARDIA [None]
  - SYNCOPE [None]
